FAERS Safety Report 8007198-7 (Version None)
Quarter: 2011Q4

REPORT INFORMATION
  Report Type: 
  Country: None (occurrence: None)
  Receive Date: 20111227
  Receipt Date: 20111219
  Transmission Date: 20120403
  Serious: Yes (Hospitalization)
  Sender: FDA-Public Use
  Company Number: US-BAYER-200943863NA

PATIENT
  Age: 27 Year
  Sex: Female
  Weight: 55 kg

DRUGS (14)
  1. DROSPIRENONE AND ETHINYL ESTRADIOL [Suspect]
     Indication: PROPHYLAXIS
     Dosage: UNK
     Route: 048
     Dates: start: 20080718, end: 20090326
  2. ADVAIR DISKUS 100/50 [Concomitant]
     Indication: ASTHMA
     Dosage: ALWAYS, ON + OFF FOR 20 YEARS
  3. FLUCONAZOLE [Concomitant]
  4. YASMIN [Suspect]
     Indication: PROPHYLAXIS
     Dosage: UNK
     Route: 048
     Dates: start: 20031201, end: 20080628
  5. NEXIUM [Concomitant]
  6. CLARITIN [Concomitant]
     Indication: ASTHMA
     Dosage: ALWAYS, ON + OFF FOR 20 YEARS
  7. LEXAPRO [Concomitant]
     Indication: DEPRESSION
     Dosage: 10 MG, DAILY
  8. CEPHALEXIN [Concomitant]
  9. NSAID'S [Concomitant]
  10. CIMETIDINE [Concomitant]
  11. SINGULAIR [Concomitant]
     Indication: ASTHMA
     Dosage: ALWAYS, ON + OFF FOR 20 YEARS
  12. METRONIDAZOLE [Concomitant]
  13. ALBUTEROL INHALER [Concomitant]
     Route: 055
  14. CIPROFLOXACIN [Concomitant]

REACTIONS (6)
  - BILE DUCT OBSTRUCTION [None]
  - PANCREATITIS [None]
  - CHOLECYSTITIS CHRONIC [None]
  - INFECTION [None]
  - CHOLECYSTITIS [None]
  - ABDOMINAL PAIN [None]
